FAERS Safety Report 10783550 (Version 2)
Quarter: 2015Q1

REPORT INFORMATION
  Report Type: Spontaneous
  Country: CN (occurrence: CN)
  Receive Date: 20150210
  Receipt Date: 20150327
  Transmission Date: 20150721
  Serious: Yes (Other)
  Sender: FDA-Public Use
  Company Number: CN-SA-2015SA013082

PATIENT
  Age: 30 Year
  Sex: Female
  Weight: 75 kg

DRUGS (4)
  1. ALPRAZOLAM. [Concomitant]
     Active Substance: ALPRAZOLAM
     Indication: INSOMNIA
     Route: 048
     Dates: start: 20140722, end: 201412
  2. ARIPIPRAZOLE. [Concomitant]
     Active Substance: ARIPIPRAZOLE
     Indication: SCHIZOPHRENIA
     Route: 048
     Dates: start: 2012
  3. PERPHENAZINE. [Concomitant]
     Active Substance: PERPHENAZINE
     Indication: SCHIZOPHRENIA
     Route: 048
     Dates: start: 20140722, end: 201412
  4. STILNOX [Suspect]
     Active Substance: ZOLPIDEM TARTRATE
     Indication: INSOMNIA
     Dosage: ONE TABLET BEFORE SLEEP
     Route: 048
     Dates: start: 20140722, end: 201412

REACTIONS (5)
  - Soliloquy [Recovering/Resolving]
  - Joint swelling [Recovered/Resolved]
  - Unresponsive to stimuli [Recovering/Resolving]
  - Peripheral swelling [Recovered/Resolved]
  - Communication disorder [Recovering/Resolving]

NARRATIVE: CASE EVENT DATE: 201411
